FAERS Safety Report 23672146 (Version 1)
Quarter: 2024Q1

REPORT INFORMATION
  Report Type: Spontaneous
  Country: RO (occurrence: None)
  Receive Date: 20240326
  Receipt Date: 20240326
  Transmission Date: 20240409
  Serious: Yes (Other)
  Sender: FDA-Public Use
  Company Number: 2024A071366

PATIENT
  Age: 73 Year
  Sex: Female

DRUGS (1)
  1. DURVALUMAB [Suspect]
     Active Substance: DURVALUMAB
     Indication: Non-small cell lung cancer stage III
     Dosage: UNKNOWN
     Route: 042
     Dates: start: 202208, end: 202211

REACTIONS (2)
  - Hepatic cytolysis [Unknown]
  - Psoriasis [Unknown]
